FAERS Safety Report 8011366-8 (Version None)
Quarter: 2011Q4

REPORT INFORMATION
  Report Type: 
  Country: None (occurrence: None)
  Receive Date: 20111228
  Receipt Date: 20111228
  Transmission Date: 20120403
  Serious: Yes (Other)
  Sender: FDA-Public Use
  Company Number: None

PATIENT
  Sex: Female
  Weight: 68.038 kg

DRUGS (2)
  1. CETIRIZINE HCL [Suspect]
     Indication: SEASONAL ALLERGY
     Dosage: 10MG
     Route: 048
  2. CETIRIZINE HCL [Suspect]
     Indication: ASTHMA
     Dosage: 10MG
     Route: 048

REACTIONS (6)
  - PRURITUS [None]
  - DRUG WITHDRAWAL SYNDROME [None]
  - DRUG DEPENDENCE [None]
  - ASTHMA [None]
  - SLEEP DISORDER [None]
  - ACTIVITIES OF DAILY LIVING IMPAIRED [None]
